FAERS Safety Report 9986929 (Version 1)
Quarter: 2014Q1

REPORT INFORMATION
  Report Type: Report from Study
  Country: US (occurrence: US)
  Receive Date: 20140307
  Receipt Date: 20140307
  Transmission Date: 20141002
  Serious: No
  Sender: FDA-Public Use
  Company Number: US-ABBVIE-13P-163-1080357-00

PATIENT
  Age: 66 Year
  Sex: Male

DRUGS (3)
  1. HUMIRA [Suspect]
     Indication: COLITIS ULCERATIVE
     Dates: start: 20130201
  2. ASACOL [Concomitant]
     Indication: COLITIS ULCERATIVE
     Dosage: 800 MG, 2 THREE TIMES A DAY
  3. CAPTOPURINE [Concomitant]
     Indication: COLITIS ULCERATIVE

REACTIONS (2)
  - Headache [Recovered/Resolved]
  - Nasopharyngitis [Recovered/Resolved]
